FAERS Safety Report 15626451 (Version 2)
Quarter: 2018Q4

REPORT INFORMATION
  Report Type: Spontaneous
  Country: IL (occurrence: IL)
  Receive Date: 20181116
  Receipt Date: 20181204
  Transmission Date: 20190205
  Serious: Yes (Hospitalization, Other)
  Sender: FDA-Public Use
  Company Number: IL-TEVA-2018-IL-975631

PATIENT
  Age: 39 Year
  Sex: Female

DRUGS (2)
  1. OMEPRADEX [Concomitant]
     Active Substance: OMEPRAZOLE
     Route: 065
  2. CINQAIR [Suspect]
     Active Substance: RESLIZUMAB
     Dosage: 3 MG/KG AND A TOTAL OF 330 MG.
     Route: 042

REACTIONS (1)
  - Epiglottitis [Unknown]
